FAERS Safety Report 13718821 (Version 1)
Quarter: 2017Q3

REPORT INFORMATION
  Report Type: Spontaneous
  Country: SG (occurrence: SG)
  Receive Date: 20170705
  Receipt Date: 20170705
  Transmission Date: 20171127
  Serious: Yes (Death)
  Sender: FDA-Public Use
  Company Number: SG-JNJFOC-20170701147

PATIENT
  Age: 80 Year
  Sex: Male

DRUGS (1)
  1. XARELTO [Suspect]
     Active Substance: RIVAROXABAN
     Indication: ATRIAL FLUTTER
     Route: 048

REACTIONS (5)
  - Hydrocephalus [Fatal]
  - Brain oedema [Fatal]
  - Basal ganglia haemorrhage [Fatal]
  - Intraventricular haemorrhage [Fatal]
  - Neurological decompensation [Fatal]
